FAERS Safety Report 9805424 (Version 1)
Quarter: 2014Q1

REPORT INFORMATION
  Report Type: Spontaneous
  Country: US (occurrence: None)
  Receive Date: 20140108
  Receipt Date: 20140108
  Transmission Date: 20141002
  Serious: Yes (Other)
  Sender: FDA-Public Use
  Company Number: None

PATIENT
  Age: 60 Year
  Sex: Female
  Weight: 49.9 kg

DRUGS (18)
  1. BIOTENE [Suspect]
     Indication: DRY MOUTH
     Dates: start: 20140106, end: 20140106
  2. SYNTHROID [Concomitant]
  3. AVAPRO [Concomitant]
  4. ZEGERID [Concomitant]
  5. EVOXAC [Concomitant]
  6. NEFAZODONE [Concomitant]
  7. CLONAZEPAM [Concomitant]
  8. AMBIEN CR [Concomitant]
  9. RESTASIS [Concomitant]
  10. ALIGN PROBIOTIC [Concomitant]
  11. MUCINEX [Concomitant]
  12. SUPER B COMPLEX [Concomitant]
  13. BABY ASPIRIN [Concomitant]
  14. CALCIUM [Concomitant]
  15. VITAMIN D [Concomitant]
  16. FLORASTOR [Concomitant]
  17. PERDIEM LAXATIVE [Concomitant]
  18. DIGESTIVE ENZYMES [Concomitant]

REACTIONS (3)
  - Oral discomfort [None]
  - Glossodynia [None]
  - Throat irritation [None]
